FAERS Safety Report 23460447 (Version 1)
Quarter: 2024Q1

REPORT INFORMATION
  Report Type: Spontaneous
  Country: IT (occurrence: IT)
  Receive Date: 20240131
  Receipt Date: 20240131
  Transmission Date: 20240410
  Serious: Yes (Other)
  Sender: FDA-Public Use
  Company Number: IT-MLMSERVICE-2018081013285121

PATIENT
  Sex: Female

DRUGS (10)
  1. ZOLEDRONIC ACID [Suspect]
     Active Substance: ZOLEDRONIC ACID
     Indication: Metastases to lymph nodes
     Dosage: TRI-WEEKLY
     Dates: start: 201404, end: 201502
  2. PACLITAXEL [Suspect]
     Active Substance: PACLITAXEL
     Indication: Metastases to lymph nodes
     Dosage: TRI-WEEKLY NAB-PACLITAXEL
     Dates: start: 201404, end: 201502
  3. PACLITAXEL [Suspect]
     Active Substance: PACLITAXEL
     Indication: Metastases to pleura
     Dosage: TRI-WEEKLY NAB-PACLITAXEL
     Dates: start: 201404, end: 201502
  4. ZOLEDRONIC ACID [Suspect]
     Active Substance: ZOLEDRONIC ACID
     Indication: Metastases to bone
     Dosage: TRI-WEEKLY
     Dates: start: 201404, end: 201502
  5. ZOLEDRONIC ACID [Suspect]
     Active Substance: ZOLEDRONIC ACID
     Indication: Metastases to liver
     Dosage: TRI-WEEKLY
     Dates: start: 201404, end: 201502
  6. ZOLEDRONIC ACID [Suspect]
     Active Substance: ZOLEDRONIC ACID
     Indication: Metastases to skin
     Dosage: TRI-WEEKLY
     Dates: start: 201404, end: 201502
  7. PACLITAXEL [Suspect]
     Active Substance: PACLITAXEL
     Indication: Metastases to skin
     Dosage: TRI-WEEKLY NAB-PACLITAXEL
     Dates: start: 201404, end: 201502
  8. PACLITAXEL [Suspect]
     Active Substance: PACLITAXEL
     Indication: Metastases to bone
     Dosage: TRI-WEEKLY NAB-PACLITAXEL
     Dates: start: 201404, end: 201502
  9. PACLITAXEL [Suspect]
     Active Substance: PACLITAXEL
     Indication: Metastases to liver
     Dosage: TRI-WEEKLY NAB-PACLITAXEL
     Dates: start: 201404, end: 201502
  10. ZOLEDRONIC ACID [Suspect]
     Active Substance: ZOLEDRONIC ACID
     Indication: Metastases to pleura
     Dosage: TRI-WEEKLY
     Dates: start: 201404, end: 201502

REACTIONS (2)
  - Neuropathy peripheral [Unknown]
  - Alopecia [Unknown]
